FAERS Safety Report 4326121-X (Version None)
Quarter: 2004Q1

REPORT INFORMATION
  Report Type: 
  Country: None (occurrence: None)
  Receive Date: 20040324
  Receipt Date: 20040311
  Transmission Date: 20041129
  Serious: Yes (Hospitalization, Other)
  Sender: FDA-Public Use
  Company Number: 230308

PATIENT
  Age: 1 Day
  Sex: Male
  Weight: 3.3 kg

DRUGS (6)
  1. NOVORAPID PENFILL (NOVORAPID PENFILL) (INSULIN ASPART) SOLUTION FOR IN [Suspect]
     Indication: DIABETES MELLITUS INSULIN-DEPENDENT
     Dosage: 98 U, QD, INTRAUTERINE
     Route: 015
     Dates: start: 20021214
  2. NOVORAPID PENFILL REGIMEN [Suspect]
     Dosage: 12 IU, SUBCUTANEOUS
     Route: 058
     Dates: start: 20030709
  3. INSULATARD PENFILL HM(GE) 3 ML (INSULIN HUMAN) [Concomitant]
  4. THYROXIN (LEVOTHYROXINE SODIUM) [Concomitant]
  5. FERROUS SULPHATE (FERROUS SULFATE) [Concomitant]
  6. HUMULIN M5 (INSULIN INJECTION, ISOPHANE) [Concomitant]

REACTIONS (3)
  - BLOOD GLUCOSE INCREASED [None]
  - HYPOGLYCAEMIA NEONATAL [None]
  - MATERNAL DRUGS AFFECTING FOETUS [None]
